FAERS Safety Report 9881510 (Version 1)
Quarter: 2014Q1

REPORT INFORMATION
  Report Type: Spontaneous
  Country: US (occurrence: US)
  Receive Date: 20140207
  Receipt Date: 20140207
  Transmission Date: 20141002
  Serious: No
  Sender: FDA-Public Use
  Company Number: US-BAYER-2014-014935

PATIENT
  Age: 53 Year
  Sex: Male
  Weight: 99.77 kg

DRUGS (3)
  1. ALEVE CAPLET [Suspect]
     Indication: TOOTHACHE
     Dosage: 3 DF, OTHER FREQUENCY
     Route: 048
  2. TRAZODONE [Concomitant]
  3. MOTRIN [Concomitant]
     Indication: TOOTHACHE

REACTIONS (5)
  - Inappropriate schedule of drug administration [None]
  - Extra dose administered [None]
  - Swelling face [Not Recovered/Not Resolved]
  - Eye swelling [Not Recovered/Not Resolved]
  - Oedema mouth [Not Recovered/Not Resolved]
